FAERS Safety Report 4465642-6 (Version None)
Quarter: 2004Q3

REPORT INFORMATION
  Report Type: 
  Country: None (occurrence: None)
  Receive Date: 20040930
  Receipt Date: 20040913
  Transmission Date: 20050211
  Serious: Yes (Other)
  Sender: FDA-Public Use
  Company Number: DSA_24971_2004

PATIENT
  Age: 55 Year
  Sex: Female

DRUGS (8)
  1. RENIVACE [Suspect]
     Dosage: 5 MG Q DAY PO
     Route: 048
     Dates: end: 20040901
  2. GASTER [Concomitant]
  3. CYTOTEC [Concomitant]
  4. ALFAROL [Concomitant]
  5. PREDNISOLONE [Concomitant]
  6. PROGRAF [Concomitant]
  7. HICEE [Concomitant]
  8. TRYPTOPHAN IMMUNOADSORPTION THERAPY [Concomitant]

REACTIONS (1)
  - SHOCK [None]
